FAERS Safety Report 25209974 (Version 1)
Quarter: 2025Q2

REPORT INFORMATION
  Report Type: Spontaneous
  Country: US (occurrence: US)
  Receive Date: 20250417
  Receipt Date: 20250417
  Transmission Date: 20250717
  Serious: No
  Sender: BIOGEN
  Company Number: US-BIOGEN-2022BI01170196

PATIENT
  Age: 40 Year
  Sex: Female

DRUGS (5)
  1. VUMERITY [Suspect]
     Active Substance: DIROXIMEL FUMARATE
     Indication: Multiple sclerosis
     Route: 050
     Dates: start: 20221113, end: 20221119
  2. VUMERITY [Suspect]
     Active Substance: DIROXIMEL FUMARATE
     Route: 050
     Dates: start: 20221120
  3. EUTHYROX [Concomitant]
     Active Substance: LEVOTHYROXINE SODIUM
     Route: 050
  4. MIRENA [Concomitant]
     Active Substance: LEVONORGESTREL
     Route: 050
  5. ALEVE [Concomitant]
     Active Substance: NAPROXEN SODIUM
     Route: 050

REACTIONS (6)
  - Product dose omission in error [Unknown]
  - Product dose omission issue [Unknown]
  - Paraesthesia [Unknown]
  - Pruritus [Not Recovered/Not Resolved]
  - Hot flush [Unknown]
  - Flushing [Recovered/Resolved]

NARRATIVE: CASE EVENT DATE: 20221113
